FAERS Safety Report 13385899 (Version 1)
Quarter: 2017Q1

REPORT INFORMATION
  Report Type: Spontaneous
  Country: FR (occurrence: FR)
  Receive Date: 20170330
  Receipt Date: 20170330
  Transmission Date: 20170429
  Serious: Yes (Hospitalization)
  Sender: FDA-Public Use
  Company Number: FR-CONCORDIA PHARMACEUTICALS INC.-GSH201703-002035

PATIENT
  Age: 82 Year
  Sex: Male

DRUGS (9)
  1. CORTANCYL [Concomitant]
     Active Substance: PREDNISONE
  2. STAGID [Concomitant]
     Active Substance: METFORMIN PAMOATE
  3. ISOPTINE [Concomitant]
     Active Substance: VERAPAMIL HYDROCHLORIDE
  4. PLAQUENIL [Suspect]
     Active Substance: HYDROXYCHLOROQUINE SULFATE
     Route: 048
     Dates: start: 20161130
  5. PLAQUENIL [Suspect]
     Active Substance: HYDROXYCHLOROQUINE SULFATE
     Route: 048
     Dates: start: 20161207, end: 20170127
  6. PLAQUENIL [Suspect]
     Active Substance: HYDROXYCHLOROQUINE SULFATE
     Route: 048
     Dates: start: 20170220
  7. KARDEGIC [Concomitant]
     Active Substance: ASPIRIN LYSINE
  8. PLAQUENIL [Suspect]
     Active Substance: HYDROXYCHLOROQUINE SULFATE
     Indication: CUTANEOUS LUPUS ERYTHEMATOSUS
     Route: 048
     Dates: start: 2013, end: 2014
  9. TAREG [Concomitant]
     Active Substance: VALSARTAN

REACTIONS (2)
  - Lichenoid keratosis [Recovering/Resolving]
  - Lichenoid keratosis [Unknown]

NARRATIVE: CASE EVENT DATE: 2013
